FAERS Safety Report 9258456 (Version 1)
Quarter: 2013Q2

REPORT INFORMATION
  Report Type: Spontaneous
  Country: US (occurrence: US)
  Receive Date: 20130426
  Receipt Date: 20130426
  Transmission Date: 20140414
  Serious: Yes (Hospitalization)
  Sender: FDA-Public Use
  Company Number: US-BAYER-2013-051711

PATIENT
  Age: 40 Year
  Sex: Female
  Weight: 83.45 kg

DRUGS (5)
  1. YASMIN [Suspect]
     Dosage: UNK
  2. ACCUTANE [Concomitant]
     Dosage: 40 MG, BID
     Dates: start: 20040626, end: 20040812
  3. VIOXX [Concomitant]
     Dosage: UNK
     Dates: start: 20040812
  4. ATIVAN [Concomitant]
     Dosage: UNK
     Dates: start: 20040812
  5. TRIAMCINOLONE [Concomitant]

REACTIONS (1)
  - Deep vein thrombosis [None]
